FAERS Safety Report 5695249-4 (Version None)
Quarter: 2008Q2

REPORT INFORMATION
  Report Type: 
  Country: None (occurrence: None)
  Receive Date: 20080404
  Receipt Date: 20080307
  Transmission Date: 20081010
  Serious: No
  Sender: FDA-Public Use
  Company Number: US-BOEHRINGER INGELHEIM GMBH, GERMANY-2008-BP-03596BP

PATIENT
  Age: 89 Year
  Sex: Male

DRUGS (2)
  1. COMBIVENT [Suspect]
     Indication: DYSPNOEA
     Route: 055
     Dates: start: 20080215, end: 20080306
  2. OXYGEN [Concomitant]

REACTIONS (1)
  - DRUG INEFFECTIVE [None]
